FAERS Safety Report 25601459 (Version 1)
Quarter: 2025Q3

REPORT INFORMATION
  Report Type: Spontaneous
  Country: US (occurrence: None)
  Receive Date: 20250723
  Receipt Date: 20250723
  Transmission Date: 20251020
  Serious: Yes (Hospitalization)
  Sender: FDA-CTU
  Company Number: None

PATIENT
  Age: 22 Year
  Sex: Female
  Weight: 90.9 kg

DRUGS (4)
  1. INDOMETHACIN [Suspect]
     Active Substance: INDOMETHACIN
     Indication: Musculoskeletal injury
     Dosage: FREQUENCY : 3 TIMES A DAY;?
     Route: 048
     Dates: start: 20250718, end: 20250718
  2. tizanidine 4mg  tablets [Concomitant]
     Dates: start: 20250718
  3. DULOXETINE [Concomitant]
     Active Substance: DULOXETINE
     Dates: start: 20240312
  4. ARIPIPRAZOLE [Concomitant]
     Active Substance: ARIPIPRAZOLE
     Dates: start: 20250312

REACTIONS (8)
  - Emotional distress [None]
  - Anxiety [None]
  - Malaise [None]
  - Visual impairment [None]
  - Auditory disorder [None]
  - Dysphagia [None]
  - Movement disorder [None]
  - Dyspnoea [None]

NARRATIVE: CASE EVENT DATE: 20250718
